FAERS Safety Report 9768808 (Version 1)
Quarter: 2013Q4

REPORT INFORMATION
  Report Type: Report from Study
  Country: ID (occurrence: ID)
  Receive Date: 20131218
  Receipt Date: 20131218
  Transmission Date: 20140711
  Serious: Yes (Death)
  Sender: FDA-Public Use
  Company Number: ID-ROCHE-1320379

PATIENT
  Age: 86 Year
  Sex: Female

DRUGS (1)
  1. BONVIVA [Suspect]
     Indication: PRODUCT USED FOR UNKNOWN INDICATION
     Route: 048

REACTIONS (1)
  - General physical health deterioration [Fatal]
